FAERS Safety Report 8368941-0 (Version None)
Quarter: 2012Q2

REPORT INFORMATION
  Report Type: 
  Country: None (occurrence: None)
  Receive Date: 20120516
  Receipt Date: 20120516
  Transmission Date: 20120825
  Serious: Yes (Hospitalization)
  Sender: FDA-Public Use
  Company Number: None

PATIENT
  Sex: Male
  Weight: 73.8 kg

DRUGS (4)
  1. VINBLASTINE SULFATE [Suspect]
     Dosage: 94 MG
  2. BLEOMYCIN [Suspect]
     Dosage: 152 UNIT
  3. DACARBAZINE [Suspect]
     Dosage: 5746 MG
  4. DOXORUBICIN HYDROCHLORIDE [Suspect]
     Dosage: 384 MG

REACTIONS (2)
  - LUNG DISORDER [None]
  - PNEUMONITIS [None]
